FAERS Safety Report 5269606-4 (Version None)
Quarter: 2007Q1

REPORT INFORMATION
  Report Type: 
  Country: None (occurrence: None)
  Receive Date: 20061213
  Receipt Date: 20030715
  Transmission Date: 20070707
  Serious: No
  Sender: FDA-Public Use
  Company Number: 2003AP02551

PATIENT
  Age: 37 Year
  Sex: Female

DRUGS (3)
  1. TAMOXIFEN CITRATE [Suspect]
     Indication: BREAST CANCER
  2. DOXORUBICIN HCL [Concomitant]
  3. CYCLOPHOSPHAMIDE [Concomitant]

REACTIONS (1)
  - ENDOMETRIAL DYSPLASIA [None]
